FAERS Safety Report 5851047-X (Version None)
Quarter: 2008Q3

REPORT INFORMATION
  Report Type: 
  Country: None (occurrence: None)
  Receive Date: 20080820
  Receipt Date: 20080807
  Transmission Date: 20090109
  Serious: Yes (Disabling, Other)
  Sender: FDA-Public Use
  Company Number: US-BAYER-US-2007-006397

PATIENT
  Age: 57 Year
  Sex: Female
  Weight: 68 kg

DRUGS (41)
  1. MAGNEVIST [Suspect]
     Indication: ANGIOGRAM
     Route: 042
     Dates: start: 20020125, end: 20020125
  2. MAGNEVIST [Suspect]
     Route: 042
     Dates: start: 20020612, end: 20020612
  3. OMNISCAN [Suspect]
     Indication: NUCLEAR MAGNETIC RESONANCE IMAGING
     Dates: start: 20020710, end: 20020710
  4. PREDNISONE TAB [Concomitant]
  5. COUMADIN [Concomitant]
  6. RENAGEL [Concomitant]
     Dosage: UNIT DOSE: 1600 MG
     Route: 048
  7. RENAGEL [Concomitant]
     Dosage: UNIT DOSE: 2400 MG
  8. EPOGEN [Concomitant]
     Route: 058
  9. EPOGEN [Concomitant]
     Route: 058
  10. EPOGEN [Concomitant]
     Route: 058
  11. EPOGEN [Concomitant]
     Route: 058
     Dates: start: 20021101
  12. EPOGEN [Concomitant]
     Route: 058
  13. EPOGEN [Concomitant]
  14. LEVOXYL [Concomitant]
  15. MINOCYCLINE HCL [Concomitant]
  16. NEPHROCAPS [Concomitant]
  17. CLOTRIMAZOLE [Concomitant]
  18. NEXIUM [Concomitant]
  19. MAALOX /USA/ [Concomitant]
  20. IRON [Concomitant]
  21. PREDNISONE TAB [Concomitant]
  22. LISINOPRIL [Concomitant]
     Dates: start: 20020122
  23. POTASSIUM CHLORIDE [Concomitant]
  24. NIFEREX [Concomitant]
  25. CELLCEPT [Concomitant]
     Dates: start: 20011001
  26. VALGANCICLOVIR HCL [Concomitant]
  27. PROGRAF [Concomitant]
     Dates: start: 20011001
  28. TORSEMIDE [Concomitant]
  29. ZAROXOLYN [Concomitant]
  30. TYLENOL W/ CODEINE NO. 3 [Concomitant]
  31. L-CARNITINE [Concomitant]
  32. FOLIC ACID [Concomitant]
  33. VITAMIN B6 [Concomitant]
  34. VITAMIN B-12 [Concomitant]
  35. FOSAMAX [Concomitant]
  36. DARVOCET-N 100 [Concomitant]
     Dates: start: 20030101
  37. VIOXX [Concomitant]
     Dates: start: 20030101
  38. CALCIUM CARBONATE [Concomitant]
  39. CALCIUM ACETATE [Concomitant]
  40. MIDODRINE [Concomitant]
     Dates: start: 20040601
  41. ULTRAVIST (PHARMACY BULK) [Concomitant]
     Indication: ARTERIOGRAM CORONARY
     Dosage: UNIT DOSE: 90 ML
     Dates: start: 20040618, end: 20040618

REACTIONS (17)
  - ANXIETY [None]
  - DRY SKIN [None]
  - EMOTIONAL DISTRESS [None]
  - FIBROSIS [None]
  - GENERAL PHYSICAL HEALTH DETERIORATION [None]
  - INJURY [None]
  - JOINT CONTRACTURE [None]
  - MOBILITY DECREASED [None]
  - NEPHROGENIC SYSTEMIC FIBROSIS [None]
  - OEDEMA [None]
  - PAIN [None]
  - QUALITY OF LIFE DECREASED [None]
  - SCAR [None]
  - SKIN EXFOLIATION [None]
  - SKIN FIBROSIS [None]
  - SKIN HYPERPIGMENTATION [None]
  - SKIN TIGHTNESS [None]
